FAERS Safety Report 19252897 (Version 1)
Quarter: 2021Q2

REPORT INFORMATION
  Report Type: Spontaneous
  Country: US (occurrence: US)
  Receive Date: 20210513
  Receipt Date: 20210513
  Transmission Date: 20210717
  Serious: No
  Sender: FDA-Public Use
  Company Number: US-UCBSA-2020020710

PATIENT

DRUGS (6)
  1. CIMZIA [Suspect]
     Active Substance: CERTOLIZUMAB PEGOL
     Indication: PSORIASIS
  2. HUMIRA [Concomitant]
     Active Substance: ADALIMUMAB
     Dosage: UNK
     Dates: start: 2014
  3. COSENTYX [Concomitant]
     Active Substance: SECUKINUMAB
     Dosage: UNK, MONTHLY (QM)
  4. OTEZLA [Concomitant]
     Active Substance: APREMILAST
  5. CIMZIA [Suspect]
     Active Substance: CERTOLIZUMAB PEGOL
     Indication: PSORIATIC ARTHROPATHY
     Dosage: UNK
  6. ENBREL [Concomitant]
     Active Substance: ETANERCEPT

REACTIONS (1)
  - Drug ineffective [Unknown]
